FAERS Safety Report 17830185 (Version 1)
Quarter: 2020Q2

REPORT INFORMATION
  Report Type: Spontaneous
  Country: AU (occurrence: AU)
  Receive Date: 20200527
  Receipt Date: 20200527
  Transmission Date: 20200714
  Serious: Yes (Other)
  Sender: FDA-Public Use
  Company Number: AU-ASTRAZENECA-2020SE67580

PATIENT
  Sex: Female

DRUGS (3)
  1. GEFITINIB. [Suspect]
     Active Substance: GEFITINIB
     Route: 048
  2. OSIMERTINIB. [Concomitant]
     Active Substance: OSIMERTINIB
  3. DEXAMETHASONE. [Suspect]
     Active Substance: DEXAMETHASONE
     Route: 065

REACTIONS (4)
  - Metastases to central nervous system [Unknown]
  - Central nervous system lesion [Not Recovered/Not Resolved]
  - Malignant neoplasm progression [Unknown]
  - Myopathy [Unknown]
